FAERS Safety Report 6616095-0 (Version None)
Quarter: 2010Q1

REPORT INFORMATION
  Report Type: 
  Country: None (occurrence: None)
  Receive Date: 20100305
  Receipt Date: 20100224
  Transmission Date: 20100710
  Serious: Yes (Hospitalization)
  Sender: FDA-Public Use
  Company Number: JP-MERCK-1002USA02848

PATIENT
  Age: 67 Year
  Sex: Female

DRUGS (8)
  1. EMEND [Suspect]
     Indication: PROPHYLAXIS OF NAUSEA AND VOMITING
     Route: 048
     Dates: start: 20100209, end: 20100209
  2. EMEND [Suspect]
     Route: 048
     Dates: start: 20100210, end: 20100211
  3. FLUOROURACIL [Suspect]
     Indication: OESOPHAGEAL CARCINOMA
     Route: 042
     Dates: start: 20100209, end: 20100211
  4. GRANISETRON HYDROCHLORIDE [Concomitant]
     Route: 065
     Dates: start: 20100209, end: 20100209
  5. AQUPLA [Concomitant]
     Route: 065
     Dates: start: 20100209, end: 20100209
  6. DECADRON PHOSPHATE [Concomitant]
     Route: 065
     Dates: start: 20100209, end: 20100209
  7. ATARAX [Concomitant]
     Route: 065
     Dates: start: 20100211, end: 20100211
  8. PRIMPERAN [Concomitant]
     Route: 065
     Dates: start: 20100211, end: 20100211

REACTIONS (4)
  - ALTERED STATE OF CONSCIOUSNESS [None]
  - HEPATIC FUNCTION ABNORMAL [None]
  - HYPERAMMONAEMIA [None]
  - LIVER DISORDER [None]
